FAERS Safety Report 12581199 (Version 4)
Quarter: 2016Q3

REPORT INFORMATION
  Report Type: Spontaneous
  Country: US (occurrence: US)
  Receive Date: 20160721
  Receipt Date: 20160816
  Transmission Date: 20161109
  Serious: Yes (Hospitalization)
  Sender: FDA-Public Use
  Company Number: US-SA-2016SA130131

PATIENT
  Age: 69 Year
  Sex: Male
  Weight: 81.65 kg

DRUGS (3)
  1. SOLOSTAR [Concomitant]
     Active Substance: DEVICE
     Dates: start: 2015
  2. LANTUS SOLOSTAR [Suspect]
     Active Substance: INSULIN GLARGINE
     Indication: TYPE 2 DIABETES MELLITUS
     Dosage: DOSE:38 UNIT(S)
     Route: 065
     Dates: start: 2015
  3. SOLOSTAR [Concomitant]
     Active Substance: DEVICE
     Dates: start: 2015

REACTIONS (2)
  - Chronic obstructive pulmonary disease [Unknown]
  - Dyspnoea [Unknown]
